FAERS Safety Report 4470020-X (Version None)
Quarter: 2004Q3

REPORT INFORMATION
  Report Type: 
  Country: None (occurrence: None)
  Receive Date: 20040920
  Receipt Date: 20040709
  Transmission Date: 20050211
  Serious: No
  Sender: FDA-Public Use
  Company Number: PHEH2004US07445

PATIENT
  Age: 64 Year
  Sex: Female
  Weight: 73.9 kg

DRUGS (2)
  1. ZOMETA [Suspect]
     Indication: MULTIPLE MYELOMA
     Dosage: UNK, QMO, INTRAVENOUS
     Route: 042
     Dates: start: 20020901, end: 20040301
  2. AREDIA [Suspect]
     Indication: MULTIPLE MYELOMA
     Dosage: UNK, QMO, INTRAVENOUS
     Route: 042
     Dates: start: 20040301

REACTIONS (4)
  - DRY SOCKET [None]
  - PAIN IN JAW [None]
  - TOOTH EXTRACTION [None]
  - TOOTHACHE [None]
